FAERS Safety Report 5752105-0 (Version None)
Quarter: 2008Q2

REPORT INFORMATION
  Report Type: 
  Country: None (occurrence: None)
  Receive Date: 20080529
  Receipt Date: 20080526
  Transmission Date: 20081010
  Serious: Yes (Life-Threatening, Hospitalization)
  Sender: FDA-Public Use
  Company Number: FR-AVENTIS-200811950FR

PATIENT
  Age: 72 Year
  Sex: Male

DRUGS (10)
  1. AMAREL [Suspect]
     Route: 048
     Dates: end: 20080426
  2. KARDEGIC                           /00002703/ [Suspect]
     Route: 048
     Dates: end: 20080426
  3. XATRAL                             /00975301/ [Suspect]
     Route: 048
     Dates: end: 20080426
  4. COAPROVEL [Suspect]
     Route: 048
     Dates: end: 20080426
  5. CARDENSIEL [Suspect]
     Route: 048
     Dates: end: 20080426
  6. METFORMINE [Suspect]
     Route: 048
     Dates: end: 20080426
  7. CRESTOR [Suspect]
     Route: 048
     Dates: end: 20080426
  8. NEXIUM [Suspect]
     Route: 048
     Dates: end: 20080426
  9. DAFALGAN                           /00020001/ [Suspect]
     Route: 048
     Dates: end: 20080426
  10. NOCTRAN [Suspect]
     Route: 048
     Dates: end: 20080426

REACTIONS (7)
  - ATRIOVENTRICULAR BLOCK COMPLETE [None]
  - BRADYCARDIA [None]
  - CONFUSIONAL STATE [None]
  - HYPERKALAEMIA [None]
  - HYPOTENSION [None]
  - METABOLIC ACIDOSIS [None]
  - RENAL FAILURE [None]
